FAERS Safety Report 7688026-6 (Version None)
Quarter: 2011Q3

REPORT INFORMATION
  Report Type: 
  Country: None (occurrence: None)
  Receive Date: 20110817
  Receipt Date: 20110815
  Transmission Date: 20111222
  Serious: Yes (Other)
  Sender: FDA-Public Use
  Company Number: US-PFIZER INC-2011154244

PATIENT
  Sex: Male

DRUGS (2)
  1. DILANTIN-125 [Suspect]
     Indication: CONVULSION
     Dosage: UNKNOWN DOSES, ONCE IN MORNING, ONCE IN NIGHT
     Route: 048
  2. PHENYTOIN [Suspect]
     Indication: CONVULSION
     Dosage: UNKNOWN DOSES, ONCE IN MORNING, ONCE IN NIGHT
     Route: 048

REACTIONS (1)
  - CONVULSION [None]
